FAERS Safety Report 13277458 (Version 1)
Quarter: 2017Q1

REPORT INFORMATION
  Report Type: Spontaneous
  Country: US (occurrence: US)
  Receive Date: 20170228
  Receipt Date: 20170228
  Transmission Date: 20170428
  Serious: No
  Sender: FDA-Public Use
  Company Number: US-MISSION PHARMACAL COMPANY-1063677

PATIENT
  Sex: Male

DRUGS (1)
  1. POTASSIUM CITRATE. [Suspect]
     Active Substance: POTASSIUM CITRATE
     Indication: URINE ALKALINISATION THERAPY
     Route: 048

REACTIONS (1)
  - Drug ineffective [Not Recovered/Not Resolved]
